FAERS Safety Report 5926472-9 (Version None)
Quarter: 2008Q4

REPORT INFORMATION
  Report Type: 
  Country: None (occurrence: None)
  Receive Date: 20081022
  Receipt Date: 20081013
  Transmission Date: 20090506
  Serious: Yes (Hospitalization)
  Sender: FDA-Public Use
  Company Number: PHFR2007GB01202

PATIENT
  Sex: Male

DRUGS (3)
  1. CLOZARIL [Suspect]
     Indication: SCHIZOPHRENIA
     Dosage: 300MG/DAY
     Route: 048
     Dates: start: 20030220, end: 20080513
  2. DIAZEPAM [Concomitant]
     Dosage: 5MG/DAY
     Route: 048
  3. ANAESTHETICS [Concomitant]

REACTIONS (8)
  - CONSTIPATION [None]
  - ENEMA ADMINISTRATION [None]
  - FAECAL DISIMPACTION [None]
  - ILEOSTOMY [None]
  - INTESTINAL OBSTRUCTION [None]
  - INTESTINAL STOMA [None]
  - MEGACOLON [None]
  - TREATMENT NONCOMPLIANCE [None]
